FAERS Safety Report 8923805 (Version 1)
Quarter: 2012Q4

REPORT INFORMATION
  Report Type: 
  Country: US (occurrence: US)
  Receive Date: 20121126
  Receipt Date: 20121126
  Transmission Date: 20130627
  Serious: Yes (Other)
  Sender: FDA-Public Use
  Company Number: US-BAYER-2012-121484

PATIENT
  Age: 48 Year
  Sex: Female
  Weight: 71.2 kg

DRUGS (6)
  1. YASMIN [Suspect]
  2. MULTIVITAMINS AND IRON [Concomitant]
     Dosage: UNK
     Dates: start: 20090223
  3. ASPIRIN [Concomitant]
     Dosage: 81 mg, UNK
     Dates: start: 20090223
  4. RESPIRATORY SYSTEM [Concomitant]
     Dosage: daily
     Dates: start: 20090223
  5. BC [Concomitant]
  6. INDERAL LA [Concomitant]
     Indication: HEADACHE

REACTIONS (2)
  - Deep vein thrombosis [None]
  - Off label use [None]
